FAERS Safety Report 10527547 (Version 1)
Quarter: 2014Q4

REPORT INFORMATION
  Report Type: Spontaneous
  Country: GR (occurrence: GR)
  Receive Date: 20141020
  Receipt Date: 20141020
  Transmission Date: 20150528
  Serious: Yes (Hospitalization)
  Sender: FDA-Public Use
  Company Number: GR-JNJFOC-20141010266

PATIENT
  Age: 16 Year
  Sex: Female

DRUGS (1)
  1. REMICADE [Suspect]
     Active Substance: INFLIXIMAB
     Indication: COLITIS
     Dosage: 4 YEARS / 4 DAYS AGO
     Route: 042

REACTIONS (2)
  - Seizure [Unknown]
  - Product use issue [Unknown]

NARRATIVE: CASE EVENT DATE: 2014
